FAERS Safety Report 6957805-2 (Version None)
Quarter: 2010Q3

REPORT INFORMATION
  Report Type: 
  Country: None (occurrence: None)
  Receive Date: 20100831
  Receipt Date: 20100826
  Transmission Date: 20110219
  Serious: Yes (Death)
  Sender: FDA-Public Use
  Company Number: TN-SANOFI-AVENTIS-2010SA051337

PATIENT
  Age: 61 Year
  Sex: Male

DRUGS (7)
  1. CLOPIDOGREL BISULFATE [Suspect]
     Indication: ACUTE CORONARY SYNDROME
     Route: 048
     Dates: start: 20100318, end: 20100324
  2. CLOPIDOGREL BISULFATE [Suspect]
     Indication: ANGIOPLASTY
     Route: 048
     Dates: start: 20100318, end: 20100324
  3. CLOPIDOGREL BISULFATE [Suspect]
     Route: 048
     Dates: start: 20100318, end: 20100324
  4. ASPEGIC 1000 [Concomitant]
     Indication: ACUTE CORONARY SYNDROME
     Route: 048
     Dates: end: 20100324
  5. GLUCOPHAGE [Concomitant]
     Route: 048
     Dates: end: 20100324
  6. LOXEN [Concomitant]
     Indication: HYPERTENSION
     Route: 048
     Dates: end: 20100324
  7. CORVASAL [Concomitant]
     Indication: ACUTE CORONARY SYNDROME
     Route: 048
     Dates: end: 20100324

REACTIONS (1)
  - MYOCARDIAL INFARCTION [None]
